FAERS Safety Report 9530103 (Version 1)
Quarter: 2013Q3

REPORT INFORMATION
  Report Type: Report from Study
  Country: US (occurrence: US)
  Receive Date: 20130917
  Receipt Date: 20130917
  Transmission Date: 20140515
  Serious: Yes (Other)
  Sender: FDA-Public Use
  Company Number: US-ACTELION-A-NJ2013-88444

PATIENT
  Age: 87 Year
  Sex: Female

DRUGS (1)
  1. TRACLEER [Suspect]
     Indication: PULMONARY ARTERIAL HYPERTENSION
     Dosage: 62.5
     Route: 048
     Dates: start: 201304, end: 20130827

REACTIONS (5)
  - Spinal fracture [Recovered/Resolved]
  - Musculoskeletal discomfort [Not Recovered/Not Resolved]
  - Fall [Recovered/Resolved]
  - Spinal operation [Recovered/Resolved]
  - Feeling abnormal [Unknown]
